FAERS Safety Report 9747041 (Version 1)
Quarter: 2013Q4

REPORT INFORMATION
  Report Type: Spontaneous
  Country: CA (occurrence: CA)
  Receive Date: 20131211
  Receipt Date: 20131211
  Transmission Date: 20140711
  Serious: Yes (Other)
  Sender: FDA-Public Use
  Company Number: CA-009507513-1312CAN003886

PATIENT
  Age: 56 Year
  Sex: Female

DRUGS (3)
  1. VICTRELIS [Suspect]
     Indication: CHRONIC HEPATITIS C
     Dosage: 800 MG, 3/1 DAYS
     Route: 048
     Dates: start: 20130917
  2. PEGASYS [Suspect]
     Indication: CHRONIC HEPATITIS C
     Dosage: 180 MICROGRAM, 1/1 WEEKS, 0.5 PRE-FILLED SYRINGE
     Route: 058
     Dates: start: 20130917
  3. COPEGUS [Suspect]
     Indication: CHRONIC HEPATITIS C
     Dosage: 1000 MG, 1/1 DAYS, 35 TABLET/WEEK
     Route: 048
     Dates: start: 20130917

REACTIONS (1)
  - Full blood count decreased [Unknown]
